FAERS Safety Report 7396626-6 (Version None)
Quarter: 2011Q2

REPORT INFORMATION
  Report Type: 
  Country: None (occurrence: None)
  Receive Date: 20110406
  Receipt Date: 20110324
  Transmission Date: 20111010
  Serious: Yes (Hospitalization, Other)
  Sender: FDA-Public Use
  Company Number: PHHY2011BR24827

PATIENT
  Sex: Female

DRUGS (5)
  1. SIMVASTATIN [Concomitant]
     Dosage: 20 MG, QD
     Route: 048
     Dates: start: 20050101
  2. NOLVADEX [Concomitant]
     Indication: PROPHYLAXIS
     Dosage: 20 MG, QD
     Route: 048
     Dates: start: 20110320
  3. DIOVAN HCT [Suspect]
     Indication: HYPERTENSION
     Dosage: 160 MG OF VALS AND 12.5 MG OF HYD, PER DAY
     Route: 048
  4. HYGROTON [Suspect]
     Dosage: 12.5 MG, UNK
  5. METFORMIN HYDROCHLORIDE [Concomitant]
     Dosage: 500 MG, QD
     Route: 048
     Dates: start: 20090101

REACTIONS (1)
  - BREAST CANCER [None]
